FAERS Safety Report 7542067-8 (Version None)
Quarter: 2011Q2

REPORT INFORMATION
  Report Type: 
  Country: None (occurrence: None)
  Receive Date: 20110613
  Receipt Date: 20110607
  Transmission Date: 20111010
  Serious: Yes (Death, Hospitalization)
  Sender: FDA-Public Use
  Company Number: US-ASTELLAS-2011US002621

PATIENT
  Sex: Female

DRUGS (7)
  1. ERLOTINIB HYDROCHLORIDE [Suspect]
     Indication: PANCREATIC CARCINOMA
     Dosage: 100 MG, UID/QD
     Route: 048
     Dates: start: 20110225
  2. POTASSIUM CHLORIDE [Concomitant]
     Indication: PRODUCT USED FOR UNKNOWN INDICATION
     Dosage: 20 MEQ, BID
     Route: 065
  3. GEMZAR [Concomitant]
     Indication: PANCREATIC CARCINOMA
     Dosage: UNK
     Route: 065
  4. XANAX [Concomitant]
     Indication: ANXIETY
     Dosage: 0.5 MG, PRN
     Route: 048
  5. COMPAZINE [Concomitant]
     Indication: NAUSEA
     Dosage: 10 MG, Q6HR PRN
     Route: 065
  6. HYDROCODONE BITARTRATE [Concomitant]
     Indication: PAIN
     Dosage: 10/325 Q4HR, PRN
     Route: 065
  7. FERROUS SULFATE TAB [Concomitant]
     Indication: PRODUCT USED FOR UNKNOWN INDICATION
     Dosage: UNK
     Route: 065

REACTIONS (9)
  - URINE ODOUR ABNORMAL [None]
  - ASTHENIA [None]
  - KLEBSIELLA INFECTION [None]
  - MYOCLONUS [None]
  - FLANK PAIN [None]
  - FATIGUE [None]
  - NAUSEA [None]
  - LIVER FUNCTION TEST ABNORMAL [None]
  - PANCREATIC CARCINOMA METASTATIC [None]
